FAERS Safety Report 4936876-9 (Version None)
Quarter: 2006Q1

REPORT INFORMATION
  Report Type: 
  Country: None (occurrence: None)
  Receive Date: 20060307
  Receipt Date: 20050223
  Transmission Date: 20060701
  Serious: Yes (Hospitalization, Disabling)
  Sender: FDA-Public Use
  Company Number: US-MERCK-0502USA03498

PATIENT
  Age: 46 Year
  Sex: Male
  Weight: 109 kg

DRUGS (6)
  1. VIOXX [Suspect]
     Indication: JOINT INJURY
     Route: 048
     Dates: start: 20010309, end: 20041011
  2. VIOXX [Suspect]
     Indication: PAIN
     Route: 048
     Dates: start: 20010301, end: 20040930
  3. VIOXX [Suspect]
     Route: 048
     Dates: start: 20010301, end: 20040930
  4. VIOXX [Suspect]
     Route: 048
     Dates: start: 20010309, end: 20041011
  5. VIOXX [Suspect]
     Route: 048
     Dates: start: 20010301, end: 20040930
  6. VIOXX [Suspect]
     Route: 048
     Dates: start: 20010301, end: 20040930

REACTIONS (15)
  - ANGINA PECTORIS [None]
  - ARRHYTHMIA [None]
  - ARTHROPATHY [None]
  - CARDIAC FAILURE [None]
  - CARDIOMEGALY [None]
  - CORONARY ARTERY DISEASE [None]
  - ELECTROCARDIOGRAM ABNORMAL [None]
  - GASTROINTESTINAL HAEMORRHAGE [None]
  - INJURY [None]
  - ISCHAEMIC CARDIOMYOPATHY [None]
  - JOINT DISLOCATION [None]
  - JOINT INJURY [None]
  - MYOCARDIAL INFARCTION [None]
  - OVERDOSE [None]
  - VENTRICULAR TACHYCARDIA [None]
